FAERS Safety Report 26214600 (Version 1)
Quarter: 2025Q4

REPORT INFORMATION
  Report Type: Spontaneous
  Country: US (occurrence: US)
  Receive Date: 20251230
  Receipt Date: 20251230
  Transmission Date: 20260117
  Serious: Yes (Disabling)
  Sender: MEDINATURA
  Company Number: US-Medinatura-2191597

PATIENT
  Age: 70 Year
  Sex: Female

DRUGS (1)
  1. HOMEOPATHICS [Suspect]
     Active Substance: HOMEOPATHICS

REACTIONS (1)
  - Respiratory tract infection [Unknown]
